FAERS Safety Report 10066335 (Version 4)
Quarter: 2014Q2

REPORT INFORMATION
  Report Type: Spontaneous
  Country: US (occurrence: US)
  Receive Date: 20140408
  Receipt Date: 20140604
  Transmission Date: 20141212
  Serious: No
  Sender: FDA-Public Use
  Company Number: US-009507513-1202USA00445

PATIENT
  Sex: Male
  Weight: 70.3 kg

DRUGS (2)
  1. PROPECIA [Suspect]
     Indication: ANDROGENETIC ALOPECIA
     Dosage: 1 MG, QD
     Route: 048
     Dates: start: 20071024, end: 20080701
  2. PROPECIA [Suspect]
     Dosage: 1 MG, UNK
     Route: 048
     Dates: start: 20090814

REACTIONS (6)
  - Contusion [Unknown]
  - Oropharyngeal pain [Unknown]
  - Joint injury [Unknown]
  - Chest pain [Unknown]
  - Sexual dysfunction [Not Recovered/Not Resolved]
  - Erectile dysfunction [Not Recovered/Not Resolved]
